FAERS Safety Report 8598232-4 (Version None)
Quarter: 2012Q3

REPORT INFORMATION
  Report Type: 
  Country: None (occurrence: None)
  Receive Date: 20120816
  Receipt Date: 20120809
  Transmission Date: 20120928
  Serious: Yes (Other)
  Sender: FDA-Public Use
  Company Number: US-ABBOTT-12P-163-0959390-00

PATIENT
  Age: 53 Year
  Sex: Male

DRUGS (2)
  1. ACTONEL [Concomitant]
     Indication: PRODUCT USED FOR UNKNOWN INDICATION
  2. HUMIRA [Suspect]
     Indication: ANKYLOSING SPONDYLITIS
     Dates: start: 20120523

REACTIONS (3)
  - SPINAL DISORDER [None]
  - MULTIPLE MYELOMA [None]
  - BACK DISORDER [None]
